FAERS Safety Report 4448340-4 (Version None)
Quarter: 2004Q3

REPORT INFORMATION
  Report Type: 
  Country: None (occurrence: None)
  Receive Date: 20040909
  Receipt Date: 20040824
  Transmission Date: 20050211
  Serious: Yes (Hospitalization)
  Sender: FDA-Public Use
  Company Number: EWC040840373

PATIENT
  Age: 60 Year
  Sex: Female
  Weight: 63 kg

DRUGS (1)
  1. GEMZAR [Suspect]
     Indication: PANCREATIC CARCINOMA
     Dosage: 1000 MG/M2 OTHER
     Route: 050
     Dates: start: 20040820

REACTIONS (3)
  - HEADACHE [None]
  - NEURALGIA [None]
  - PYREXIA [None]
